FAERS Safety Report 7151982-9 (Version None)
Quarter: 2010Q4

REPORT INFORMATION
  Report Type: 
  Country: None (occurrence: None)
  Receive Date: 20101211
  Receipt Date: 20101202
  Transmission Date: 20110411
  Serious: Yes (Other)
  Sender: FDA-Public Use
  Company Number: JP-PFIZER INC-2010152498

PATIENT
  Age: 35 Year
  Sex: Male

DRUGS (6)
  1. LYRICA [Suspect]
     Indication: COMPLEX REGIONAL PAIN SYNDROME
     Dosage: 75 MG, 2X/DAY
     Route: 048
     Dates: start: 20101105
  2. PROMAZINE HYDROCHLORIDE [Suspect]
     Dosage: UNK
     Route: 048
  3. CYMBALTA [Concomitant]
     Indication: DEPRESSION
     Dosage: 30 MG, 2X/DAY
     Route: 048
     Dates: start: 20101007
  4. VEGETAMIN B [Concomitant]
     Indication: DEPRESSION
     Dosage: 1 DF, A DAY
     Route: 048
     Dates: start: 20101007, end: 20101018
  5. NITRAZEPAM [Concomitant]
     Indication: INSOMNIA
     Dosage: 5 MG, A DAY
     Route: 048
     Dates: start: 20101007, end: 20101018
  6. VEGETAMIN A [Concomitant]
     Indication: DEPRESSION
     Dosage: 1 DF, A DAY
     Route: 048
     Dates: start: 20101007

REACTIONS (3)
  - DIZZINESS [None]
  - ROAD TRAFFIC ACCIDENT [None]
  - VISION BLURRED [None]
